FAERS Safety Report 12603231 (Version 2)
Quarter: 2016Q3

REPORT INFORMATION
  Report Type: Spontaneous
  Country: US (occurrence: US)
  Receive Date: 20160728
  Receipt Date: 20160818
  Transmission Date: 20161109
  Serious: Yes (Hospitalization)
  Sender: FDA-Public Use
  Company Number: US-ACTELION-A-NJ2016-139592

PATIENT
  Age: 68 Year
  Sex: Male

DRUGS (2)
  1. TARGRETIN [Concomitant]
     Active Substance: BEXAROTENE
  2. VALCHLOR [Suspect]
     Active Substance: MECHLORETHAMINE
     Indication: MYCOSIS FUNGOIDES
     Dosage: UNK, ONCE DAILY
     Route: 061
     Dates: start: 20160212

REACTIONS (6)
  - Pulmonary thrombosis [Unknown]
  - Lymphadenopathy [Unknown]
  - Nodule [Recovered/Resolved]
  - Application site infection [Recovered/Resolved]
  - Staphylococcal infection [Recovered/Resolved]
  - Application site burn [Recovered/Resolved]
